FAERS Safety Report 7029773-9 (Version None)
Quarter: 2010Q4

REPORT INFORMATION
  Report Type: 
  Country: None (occurrence: None)
  Receive Date: 20101001
  Receipt Date: 20100914
  Transmission Date: 20110411
  Serious: Yes (Disabling, Other)
  Sender: FDA-Public Use
  Company Number: 7017616

PATIENT
  Age: 43 Year
  Sex: Female

DRUGS (6)
  1. LEVOTHYROXINE SODIUM [Suspect]
     Indication: POST PROCEDURAL HYPOTHYROIDISM
     Dosage: SEE IMAGE
     Route: 048
     Dates: start: 20100701, end: 20100801
  2. LEVOTHYROXINE SODIUM [Suspect]
     Indication: POST PROCEDURAL HYPOTHYROIDISM
     Dosage: SEE IMAGE
     Route: 048
     Dates: start: 20100801
  3. LEVOTHYROXINE SODIUM [Suspect]
     Indication: POST PROCEDURAL HYPOTHYROIDISM
     Dosage: SEE IMAGE
     Route: 048
     Dates: start: 20100801
  4. MEXAZOLAM (MEXAZOLAM) [Concomitant]
  5. PAROXETINE (PAROXETINE) (PAROXETINE) [Concomitant]
  6. DIAZEPAM [Concomitant]

REACTIONS (3)
  - ALOPECIA [None]
  - ANXIETY [None]
  - CONDITION AGGRAVATED [None]
